FAERS Safety Report 8744225 (Version 2)
Quarter: 2012Q4

REPORT INFORMATION
  Report Type: 
  Country: US (occurrence: US)
  Receive Date: 20120824
  Receipt Date: 20121017
  Transmission Date: 20130627
  Serious: No
  Sender: FDA-Public Use
  Company Number: US-009507513-1208USA009029

PATIENT

DRUGS (2)
  1. COPPERTONE WATER BABIES QUICK COVER LOTION SPRAY SPF-50 [Suspect]
     Indication: PRODUCT USED FOR UNKNOWN INDICATION
     Dosage: UNK, Unknown
     Route: 061
  2. COPPERTONE WATER BABIES SUNSCREEN STICK SPF-55 [Suspect]
     Indication: PRODUCT USED FOR UNKNOWN INDICATION
     Dosage: UNK, Unknown
     Route: 061

REACTIONS (1)
  - Sunburn [Unknown]
